FAERS Safety Report 8683589 (Version 2)
Quarter: 2013Q2

REPORT INFORMATION
  Report Type: Spontaneous
  Country: US (occurrence: None)
  Receive Date: 20120411
  Receipt Date: 20120713
  Transmission Date: 20140414
  Serious: Yes (Other)
  Sender: FDA-Public Use
  Company Number: PHEH2012US005235

PATIENT
  Age: 35 Year
  Sex: Female

DRUGS (1)
  1. ILARIS [Suspect]
     Dates: start: 2011

REACTIONS (1)
  - DRUG EFFECT DECREASED [None]
